FAERS Safety Report 5514835-5 (Version None)
Quarter: 2007Q4

REPORT INFORMATION
  Report Type: 
  Country: None (occurrence: None)
  Receive Date: 20071113
  Receipt Date: 20071102
  Transmission Date: 20080405
  Serious: Yes (Other)
  Sender: FDA-Public Use
  Company Number: CA-ELI_LILLY_AND_COMPANY-CA200708005672

PATIENT
  Sex: Male

DRUGS (4)
  1. HUMALOG [Suspect]
     Indication: DIABETES MELLITUS
     Dosage: UNK, OTHER
     Route: 058
  2. HUMULIN N [Suspect]
  3. GLUCAGON [Suspect]
     Indication: HYPOGLYCAEMIA
     Dosage: UNK, AS NEEDED
     Route: 058
  4. LEVEMIR [Concomitant]
     Indication: DIABETES MELLITUS
     Dosage: 7 U, 2/D
     Route: 058
     Dates: start: 20070701

REACTIONS (3)
  - BLOOD GLUCOSE INCREASED [None]
  - CONVULSION [None]
  - HYPOGLYCAEMIA [None]
